FAERS Safety Report 7668421-1 (Version None)
Quarter: 2011Q3

REPORT INFORMATION
  Report Type: 
  Country: None (occurrence: None)
  Receive Date: 20110808
  Receipt Date: 20110725
  Transmission Date: 20111222
  Serious: Yes (Hospitalization)
  Sender: FDA-Public Use
  Company Number: US-ELI_LILLY_AND_COMPANY-US201107000954

PATIENT
  Sex: Female

DRUGS (18)
  1. PLAQUENIL [Concomitant]
  2. FORTEO [Suspect]
     Indication: OSTEOPOROSIS
     Dosage: 20 UG, QD
     Dates: start: 20110601
  3. CIPROFLOXACIN HCL [Concomitant]
  4. COLACE [Concomitant]
  5. LASIX [Concomitant]
     Dosage: 40 MG, UNK
  6. MUCINEX [Concomitant]
  7. POTASSIUM [Concomitant]
  8. PREDNISONE [Concomitant]
     Dosage: 40 MG, UNK
  9. FERROUS SULFATE TAB [Concomitant]
  10. FOLIC ACID [Concomitant]
     Dosage: 1 MG, UNK
  11. OXYCODONE HCL [Concomitant]
     Dosage: 5 MG, EVERY 4 HRS
  12. PERFOROMIST [Concomitant]
  13. PREVACID [Concomitant]
     Dosage: 15 MG, UNK
  14. FORTEO [Suspect]
     Dosage: 20 UG, QD
  15. ALBUTEROL SULFATE AUTOHALER [Concomitant]
     Dosage: UNK, TID
  16. PULMICORT [Concomitant]
  17. ZOSYN [Concomitant]
  18. PAXIL [Concomitant]
     Dosage: 20 MG, UNK

REACTIONS (8)
  - INJECTION SITE HAEMATOMA [None]
  - DRUG DOSE OMISSION [None]
  - MALAISE [None]
  - SOMNOLENCE [None]
  - CONTUSION [None]
  - PAIN [None]
  - PNEUMONIA [None]
  - MEDICATION ERROR [None]
